FAERS Safety Report 8092156-7 (Version None)
Quarter: 2012Q1

REPORT INFORMATION
  Report Type: 
  Country: None (occurrence: None)
  Receive Date: 20120129
  Receipt Date: 20111115
  Transmission Date: 20120608
  Serious: No
  Sender: FDA-Public Use
  Company Number: US-ABBOTT-11P-163-0874276-00

PATIENT
  Age: 33 Year
  Sex: Female

DRUGS (13)
  1. PRILOSEC [Concomitant]
     Indication: CROHN'S DISEASE
  2. FOLIC ACID [Concomitant]
     Indication: SUPPLEMENTATION THERAPY
  3. MERCAPTOPURINE [Concomitant]
     Indication: CROHN'S DISEASE
  4. HUMIRA [Suspect]
     Indication: CROHN'S DISEASE
     Dates: start: 20111015
  5. LIALDA [Concomitant]
     Indication: COLITIS
  6. SULFASALAZINE [Concomitant]
     Indication: COLITIS
  7. FISH OIL [Concomitant]
     Indication: SUPPLEMENTATION THERAPY
  8. MERCAPTOPURINE [Concomitant]
     Indication: COLITIS
  9. SULFASALAZINE [Concomitant]
     Indication: CROHN'S DISEASE
  10. ASCORBIC ACID [Concomitant]
     Indication: SUPPLEMENTATION THERAPY
  11. LIALDA [Concomitant]
     Indication: CROHN'S DISEASE
  12. VITAMIN D [Concomitant]
     Indication: SUPPLEMENTATION THERAPY
  13. PRILOSEC [Concomitant]
     Indication: COLITIS

REACTIONS (1)
  - ABDOMINAL PAIN UPPER [None]
